FAERS Safety Report 18203039 (Version 3)
Quarter: 2020Q3

REPORT INFORMATION
  Report Type: Spontaneous
  Country: US (occurrence: US)
  Receive Date: 20200827
  Receipt Date: 20200831
  Transmission Date: 20201103
  Serious: No
  Sender: FDA-Public Use
  Company Number: US-SA-2020SA223925

PATIENT

DRUGS (2)
  1. LANTUS SOLOSTAR [Suspect]
     Active Substance: INSULIN GLARGINE
     Indication: DIABETES MELLITUS
     Dosage: 13 IU, QD (PRESCRIBED DOSE)
     Route: 065
  2. LANTUS SOLOSTAR [Suspect]
     Active Substance: INSULIN GLARGINE
     Dosage: 36 IU, QD (ACCIDENTALLY GAVE HERSELF)
     Route: 065

REACTIONS (2)
  - Blood glucose abnormal [Unknown]
  - Wrong dose [Unknown]

NARRATIVE: CASE EVENT DATE: 20200820
